FAERS Safety Report 4660752-2 (Version None)
Quarter: 2005Q2

REPORT INFORMATION
  Report Type: 
  Country: None (occurrence: None)
  Receive Date: 20050511
  Receipt Date: 20050427
  Transmission Date: 20051028
  Serious: Yes (Hospitalization)
  Sender: FDA-Public Use
  Company Number: 2005BI003745

PATIENT
  Age: 44 Year
  Sex: Male
  Weight: 68.0396 kg

DRUGS (2)
  1. AVONEX [Suspect]
     Indication: MULTIPLE SCLEROSIS
     Dosage: 30 UG; QW; IM
     Route: 030
     Dates: start: 19980101
  2. BACLOFEN [Concomitant]

REACTIONS (6)
  - BEDRIDDEN [None]
  - CONDITION AGGRAVATED [None]
  - DECUBITUS ULCER [None]
  - DISEASE PROGRESSION [None]
  - INFECTED SKIN ULCER [None]
  - MULTIPLE SCLEROSIS [None]
